FAERS Safety Report 25318800 (Version 1)
Quarter: 2025Q2

REPORT INFORMATION
  Report Type: Spontaneous
  Country: CA (occurrence: CA)
  Receive Date: 20250515
  Receipt Date: 20250515
  Transmission Date: 20250716
  Serious: Yes (Other)
  Sender: PFIZER
  Company Number: CA-PFIZER INC-202500099272

PATIENT
  Age: 25 Year
  Sex: Male

DRUGS (3)
  1. SULFASALAZINE [Suspect]
     Active Substance: SULFASALAZINE
     Indication: Ankylosing spondylitis
     Dosage: 1000 MG, 2X/DAY
     Dates: start: 202409
  2. PREVNAR 20 [Concomitant]
     Active Substance: PNEUMOCOCCAL 20-VALENT CONJUGATE VACCINE
     Dates: start: 20250510, end: 20250510
  3. HEP B VAX [Concomitant]
     Dates: start: 20250512, end: 20250512

REACTIONS (2)
  - Liver contusion [Unknown]
  - Off label use [Unknown]

NARRATIVE: CASE EVENT DATE: 20240901
